FAERS Safety Report 10900706 (Version 1)
Quarter: 2015Q1

REPORT INFORMATION
  Report Type: Report from Study
  Country: CA (occurrence: CA)
  Receive Date: 20150310
  Receipt Date: 20150310
  Transmission Date: 20150721
  Serious: Yes (Other)
  Sender: FDA-Public Use
  Company Number: CA-JNJFOC-20141111790

PATIENT
  Age: 34 Year
  Sex: Female
  Weight: 71.4 kg

DRUGS (1)
  1. REMICADE [Suspect]
     Active Substance: INFLIXIMAB
     Indication: COLITIS ULCERATIVE
     Route: 042
     Dates: start: 2007

REACTIONS (2)
  - Exposure during pregnancy [Not Recovered/Not Resolved]
  - Abortion spontaneous [Unknown]

NARRATIVE: CASE EVENT DATE: 201410
